FAERS Safety Report 5497690-1 (Version None)
Quarter: 2007Q4

REPORT INFORMATION
  Report Type: 
  Country: None (occurrence: None)
  Receive Date: 20071025
  Receipt Date: 20070207
  Transmission Date: 20080405
  Serious: No
  Sender: FDA-Public Use
  Company Number: A0638746A

PATIENT
  Age: 61 Year
  Sex: Female

DRUGS (7)
  1. ADVAIR DISKUS 100/50 [Suspect]
     Indication: CHRONIC OBSTRUCTIVE PULMONARY DISEASE
     Route: 055
     Dates: start: 20070203
  2. ATROVENT [Concomitant]
  3. SINGULAIR [Concomitant]
  4. NEXIUM [Concomitant]
  5. HYDROCODONE [Concomitant]
  6. AMITRIPTYLINE HCL [Concomitant]
  7. ALBUTEROL NEB [Concomitant]

REACTIONS (2)
  - INFLUENZA LIKE ILLNESS [None]
  - PAIN [None]
